FAERS Safety Report 7991259-2 (Version None)
Quarter: 2011Q4

REPORT INFORMATION
  Report Type: 
  Country: None (occurrence: None)
  Receive Date: 20111219
  Receipt Date: 20111212
  Transmission Date: 20120403
  Serious: Yes (Hospitalization)
  Sender: FDA-Public Use
  Company Number: AU-VIIV HEALTHCARE LIMITED-B0770124A

PATIENT
  Sex: Female

DRUGS (3)
  1. ABACAVIR SULFATE AND LAMIVUDINE [Suspect]
     Indication: PRODUCT USED FOR UNKNOWN INDICATION
     Route: 065
  2. TRIZIVIR [Suspect]
     Indication: PRODUCT USED FOR UNKNOWN INDICATION
     Route: 065
  3. VIRAMUNE [Concomitant]
     Route: 065

REACTIONS (1)
  - MENTAL DISORDER [None]
